FAERS Safety Report 7885123-7 (Version None)
Quarter: 2011Q4

REPORT INFORMATION
  Report Type: 
  Country: None (occurrence: None)
  Receive Date: 20111102
  Receipt Date: 20111024
  Transmission Date: 20120403
  Serious: Yes (Hospitalization)
  Sender: FDA-Public Use
  Company Number: CH-ASTRAZENECA-2011SE64582

PATIENT
  Age: 69 Year
  Sex: Male

DRUGS (5)
  1. SEROQUEL [Suspect]
     Route: 048
     Dates: start: 20110118, end: 20110126
  2. CLOPIDOGREL [Suspect]
     Route: 048
     Dates: start: 20000101
  3. NEXIUM [Suspect]
     Route: 048
     Dates: start: 20100101
  4. LERCANIDIPINE [Suspect]
     Route: 048
     Dates: start: 20100101
  5. TAMSULOSIN HCL [Suspect]
     Route: 048
     Dates: end: 20110118

REACTIONS (5)
  - DELIRIUM [None]
  - MUSCLE SPASMS [None]
  - SOMNAMBULISM [None]
  - CONFUSIONAL STATE [None]
  - MUSCULAR WEAKNESS [None]
